FAERS Safety Report 8139160-8 (Version None)
Quarter: 2012Q1

REPORT INFORMATION
  Report Type: 
  Country: None (occurrence: None)
  Receive Date: 20120215
  Receipt Date: 20120210
  Transmission Date: 20120608
  Serious: Yes (Other)
  Sender: FDA-Public Use
  Company Number: US-BAYER-2012-014822

PATIENT
  Sex: Female

DRUGS (2)
  1. SOTALOL HCL [Concomitant]
  2. BETAPACE [Suspect]
     Dosage: 80 MG, QD
     Dates: start: 20120201

REACTIONS (2)
  - ATRIAL FIBRILLATION [None]
  - PALPITATIONS [None]
